FAERS Safety Report 12475419 (Version 2)
Quarter: 2016Q2

REPORT INFORMATION
  Report Type: Report from Study
  Country: BR (occurrence: BR)
  Receive Date: 20160617
  Receipt Date: 20160630
  Transmission Date: 20160815
  Serious: Yes (Other)
  Sender: FDA-Public Use
  Company Number: PHHY2016BR078831

PATIENT
  Sex: Female
  Weight: 51 kg

DRUGS (13)
  1. PURAN [Concomitant]
     Active Substance: LEVOTHYROXINE SODIUM
     Indication: HYPOTHYROIDISM
  2. MODURETIC 5-50 [Concomitant]
     Active Substance: AMILORIDE HYDROCHLORIDE\HYDROCHLOROTHIAZIDE
     Indication: HYPERTENSION
     Dosage: 25 MG, QD (15 YEARS AGO)
     Route: 048
  3. DONAREN [Concomitant]
     Active Substance: TRAZODONE HYDROCHLORIDE
     Indication: DEPRESSION
     Dosage: 50 MG, BID (10 YEARS AGO)
     Route: 048
  4. ACLASTA [Suspect]
     Active Substance: ZOLEDRONIC ACID
     Indication: OSTEOPOROSIS
     Dosage: 1 DF, Q12MO (5/100 ML) (APPROXIMATELY 4 YEARS AGO)
     Route: 042
  5. ACLASTA [Suspect]
     Active Substance: ZOLEDRONIC ACID
     Dosage: 5 MG, Q12MO
     Route: 042
     Dates: start: 2013
  6. GABAPENTINE [Concomitant]
     Active Substance: GABAPENTIN
     Indication: SPINAL PAIN
     Dosage: 300 MG, QD (3 YEARS AGO)
     Route: 048
  7. DIOVAN [Suspect]
     Active Substance: VALSARTAN
     Indication: PERIPHERAL VASCULAR DISORDER
     Dosage: 450 MG, QD (4 YEARS AGO)
     Route: 048
  8. CALCIUM [Concomitant]
     Active Substance: CALCIUM
     Indication: OSTEOPOROSIS
     Dosage: 400 MG, BID (15 YEARS AGO)
     Route: 048
  9. CARDIZEM [Concomitant]
     Active Substance: DILTIAZEM HYDROCHLORIDE
     Indication: CARDIAC DISORDER
     Dosage: 30 MG, BID (10 YEARS AGO)
     Route: 048
  10. EXELON PATCH [Suspect]
     Active Substance: RIVASTIGMINE
     Indication: DEMENTIA ALZHEIMER^S TYPE
     Dosage: 5 MG, QD (1 YEAR AND HALF AGO)
     Route: 062
  11. PURAN [Concomitant]
     Active Substance: LEVOTHYROXINE SODIUM
     Indication: HYPERTHYROIDISM
     Dosage: 88 MG, QD (15 YEARS AGO)
     Route: 048
  12. SUSTRATE [Concomitant]
     Active Substance: PROPATYL NITRATE
     Indication: CARDIAC DISORDER
     Dosage: 10 MG, BID
     Route: 048
  13. QUETIAPINE. [Concomitant]
     Active Substance: QUETIAPINE
     Indication: DEMENTIA ALZHEIMER^S TYPE
     Dosage: 25 MG, QD (1 YEAR AND HALF AGO)
     Route: 048

REACTIONS (4)
  - Influenza [Recovered/Resolved]
  - Cough [Recovered/Resolved]
  - Platelet count decreased [Not Recovered/Not Resolved]
  - Immunodeficiency [Unknown]
